FAERS Safety Report 7524925-3 (Version None)
Quarter: 2011Q2

REPORT INFORMATION
  Report Type: 
  Country: None (occurrence: None)
  Receive Date: 20110606
  Receipt Date: 20110601
  Transmission Date: 20111010
  Serious: Yes (Hospitalization)
  Sender: FDA-Public Use
  Company Number: JP-GENZYME-FLUD-1000385

PATIENT
  Sex: Male
  Weight: 76 kg

DRUGS (22)
  1. FLUDARA [Suspect]
     Indication: ACUTE MYELOID LEUKAEMIA
  2. ITRACONAZOL A [Concomitant]
     Indication: ANTIFUNGAL PROPHYLAXIS
     Dosage: UNK
     Route: 065
     Dates: start: 20100111, end: 20100317
  3. RABEPRAZOLE SODIUM [Concomitant]
     Indication: PROPHYLAXIS AGAINST GASTROINTESTINAL ULCER
     Dosage: UNK
     Route: 065
     Dates: start: 20100125, end: 20100324
  4. METHYLPEDNISOLONE SODIUM SUCCINATE [Concomitant]
     Indication: PREMEDICATION
     Dosage: UNK
     Route: 065
     Dates: start: 20100117, end: 20100117
  5. METHYLPEDNISOLONE SODIUM SUCCINATE [Concomitant]
     Indication: PROPHYLAXIS AGAINST GRAFT VERSUS HOST DISEASE
     Dosage: UNK
     Route: 065
     Dates: start: 20100118, end: 20100216
  6. LEUCOVORIN CALCIUM [Concomitant]
     Indication: PROPHYLAXIS
     Dosage: UNK
     Route: 065
     Dates: start: 20100122, end: 20100127
  7. HYDROXYZINE [Concomitant]
     Indication: STEM CELL TRANSPLANT
     Dosage: UNK
     Route: 065
     Dates: start: 20100119, end: 20100119
  8. URSO 250 [Concomitant]
     Indication: PROPHYLAXIS
     Dosage: UNK
     Route: 065
     Dates: start: 20100111, end: 20100317
  9. TACROLIMUS [Concomitant]
     Indication: PROPHYLAXIS AGAINST GRAFT VERSUS HOST DISEASE
     Dosage: UNK
     Route: 065
     Dates: start: 20100118, end: 20100226
  10. THYMOGLOBULIN [Suspect]
     Indication: PREMEDICATION
     Dosage: 83 MG, QD, INJECTION
     Route: 065
     Dates: start: 20100117, end: 20100117
  11. THYMOGLOBULIN [Suspect]
     Indication: ACUTE MYELOID LEUKAEMIA
  12. CIPROFLOXACIN HYDROCHLORIDE [Concomitant]
     Indication: ANTIBIOTIC PROPHYLAXIS
     Dosage: UNK
     Route: 065
     Dates: start: 20100111, end: 20100128
  13. ACYCLOVIR [Concomitant]
     Indication: ANTIVIRAL PROPHYLAXIS
     Dosage: UNK
     Route: 065
     Dates: start: 20100112, end: 20100429
  14. LANSOPRAZOLE [Concomitant]
     Indication: PROPHYLAXIS AGAINST GASTROINTESTINAL ULCER
     Dosage: UNK
     Route: 065
     Dates: start: 20100329, end: 20100429
  15. VALPROATE SODIUM [Concomitant]
     Indication: CONVULSION PROPHYLAXIS
     Dosage: UNK
     Route: 065
     Dates: start: 20100112, end: 20100115
  16. FLUDARA [Suspect]
     Indication: PREMEDICATION
     Dosage: UNK
     Route: 065
     Dates: start: 20100111, end: 20100116
  17. GRANISETRON HCL [Concomitant]
     Indication: PROPHYLAXIS OF NAUSEA AND VOMITING
     Dosage: UNK
     Route: 065
     Dates: start: 20100111, end: 20100116
  18. LEVOFLOXACIN [Concomitant]
     Indication: ANTIBIOTIC PROPHYLAXIS
     Dosage: UNK
     Route: 065
     Dates: start: 20100218, end: 20100317
  19. BUSULFAN [Concomitant]
     Indication: PREMEDICATION
     Dosage: UNK
     Route: 065
     Dates: start: 20100113, end: 20100114
  20. BUSULFAN [Concomitant]
     Indication: ACUTE MYELOID LEUKAEMIA
  21. METHYLPEDNISOLONE SODIUM SUCCINATE [Concomitant]
     Indication: ACUTE MYELOID LEUKAEMIA
  22. METHOTREXATE [Concomitant]
     Indication: PROPHYLAXIS AGAINST GRAFT VERSUS HOST DISEASE
     Dosage: UNK
     Route: 065
     Dates: start: 20100120, end: 20100125

REACTIONS (8)
  - FEBRILE NEUTROPENIA [None]
  - NEUTROPENIA [None]
  - HYPOMAGNESAEMIA [None]
  - PYREXIA [None]
  - STOMATITIS [None]
  - ENGRAFT FAILURE [None]
  - WEIGHT INCREASED [None]
  - DECREASED APPETITE [None]
